FAERS Safety Report 6011447-4 (Version None)
Quarter: 2008Q4

REPORT INFORMATION
  Report Type: 
  Country: None (occurrence: None)
  Receive Date: 20081218
  Receipt Date: 20031118
  Transmission Date: 20090506
  Serious: Yes (Death, Hospitalization)
  Sender: FDA-Public Use
  Company Number: US-ROCHE-348747

PATIENT
  Sex: Female

DRUGS (6)
  1. CAPECITABINE [Suspect]
     Indication: BREAST CANCER
     Dosage: GIVEN ON DAYS 1 -14 EVERY 3 WEEK CYCLE.
     Route: 048
     Dates: start: 20030718, end: 20030731
  2. IXABEPILONE [Suspect]
     Indication: BREAST CANCER
     Route: 042
     Dates: start: 20030718
  3. IXABEPILONE [Suspect]
     Dosage: DOSE REDUCED BY 20%.
     Route: 042
     Dates: start: 20030808, end: 20030808
  4. DILTIAZEM HCL [Concomitant]
  5. SYNTHROID [Concomitant]
  6. IRON [Concomitant]

REACTIONS (21)
  - ANOREXIA [None]
  - CARDIAC FAILURE [None]
  - CLOSTRIDIUM COLITIS [None]
  - DEATH [None]
  - DIARRHOEA [None]
  - FLUID OVERLOAD [None]
  - HAEMOTHORAX [None]
  - HEPATIC FAILURE [None]
  - HYPERCALCAEMIA [None]
  - HYPERTENSION [None]
  - HYPOTENSION [None]
  - HYPOTHYROIDISM [None]
  - MULTI-ORGAN FAILURE [None]
  - NAUSEA [None]
  - PNEUMONIA [None]
  - PULMONARY EMBOLISM [None]
  - RENAL FAILURE [None]
  - RESPIRATORY FAILURE [None]
  - SEPSIS [None]
  - SMALL INTESTINAL OBSTRUCTION [None]
  - VOMITING [None]
